FAERS Safety Report 20714388 (Version 1)
Quarter: 2022Q2

REPORT INFORMATION
  Report Type: Spontaneous
  Country: US (occurrence: US)
  Receive Date: 20220415
  Receipt Date: 20220415
  Transmission Date: 20220721
  Serious: No
  Sender: FDA-Public Use
  Company Number: US-PFIZER INC-202101029298

PATIENT

DRUGS (1)
  1. AMLODIPINE BESYLATE [Suspect]
     Active Substance: AMLODIPINE BESYLATE
     Dosage: UNK

REACTIONS (6)
  - Illness [Unknown]
  - Joint swelling [Unknown]
  - Feeling abnormal [Unknown]
  - Dizziness [Unknown]
  - Dyspepsia [Unknown]
  - Dysgeusia [Unknown]
